FAERS Safety Report 10273296 (Version 2)
Quarter: 2014Q3

REPORT INFORMATION
  Report Type: Spontaneous
  Country: PE (occurrence: PE)
  Receive Date: 20140702
  Receipt Date: 20140728
  Transmission Date: 20150326
  Serious: Yes (Life-Threatening, Hospitalization, Disabling, Other)
  Sender: FDA-Public Use
  Company Number: PE-009507513-1406PER013874

PATIENT
  Age: 75 Year
  Sex: Male
  Weight: 62 kg

DRUGS (6)
  1. AMLODIPINE BESYLATE AND ATORVASTATIN CALCIUM [Concomitant]
     Active Substance: AMLODIPINE BESYLATE\ATORVASTATIN CALCIUM
     Dosage: 5-10 MG/DAY TOTAL DAILY DOSE
  2. JANUVIA [Suspect]
     Active Substance: SITAGLIPTIN PHOSPHATE
     Indication: DIABETES MELLITUS
     Dosage: 100 MG, ONCE A DAY
     Route: 048
     Dates: start: 201103, end: 20140321
  3. VALSARTAN. [Concomitant]
     Active Substance: VALSARTAN
     Dosage: 80 MG/DAY TOTAL DAILY DOSE
  4. ATORVASTATIN [Concomitant]
     Active Substance: ATORVASTATIN
     Dosage: 20 MG/DAY TOTAL DAILY DOSE
  5. CARVEDILOL. [Concomitant]
     Active Substance: CARVEDILOL
     Dosage: 12.5 MG/DAY TOTAL DAILY DOSE
  6. PIOGLITAZONE HYDROCHLORIDE. [Concomitant]
     Active Substance: PIOGLITAZONE HYDROCHLORIDE
     Dosage: 15 MG/DAY TOTAL DAILY DOSE

REACTIONS (2)
  - Surgery [Unknown]
  - Pancreatic carcinoma metastatic [Not Recovered/Not Resolved]

NARRATIVE: CASE EVENT DATE: 2014
